FAERS Safety Report 25649293 (Version 1)
Quarter: 2025Q3

REPORT INFORMATION
  Report Type: Spontaneous
  Country: US (occurrence: US)
  Receive Date: 20250806
  Receipt Date: 20250806
  Transmission Date: 20251021
  Serious: No
  Sender: PL DEVELOPMENTS
  Company Number: US-P+L Devolo-2181912

PATIENT
  Age: 38 Year
  Sex: Male

DRUGS (2)
  1. LORATADINE\PSEUDOEPHEDRINE SULFATE [Suspect]
     Active Substance: LORATADINE\PSEUDOEPHEDRINE SULFATE
     Indication: Cold urticaria
     Dates: start: 20250719, end: 20250721
  2. VITAMIN B12 [Concomitant]
     Active Substance: CYANOCOBALAMIN

REACTIONS (3)
  - Migraine [Recovered/Resolved with Sequelae]
  - Drug ineffective [Recovered/Resolved with Sequelae]
  - Epistaxis [Recovered/Resolved]

NARRATIVE: CASE EVENT DATE: 20250719
